FAERS Safety Report 19176247 (Version 1)
Quarter: 2021Q2

REPORT INFORMATION
  Report Type: Spontaneous
  Country: FR (occurrence: FR)
  Receive Date: 20210424
  Receipt Date: 20210424
  Transmission Date: 20210717
  Serious: Yes (Other)
  Sender: FDA-Public Use
  Company Number: FR-MACLEODS PHARMACEUTICALS US LTD-MAC2021030901

PATIENT

DRUGS (2)
  1. TRAMADOL. [Suspect]
     Active Substance: TRAMADOL
     Indication: BACK PAIN
     Dosage: UNK
     Route: 065
     Dates: start: 2004
  2. TRAMADOL. [Suspect]
     Active Substance: TRAMADOL
     Dosage: 6 DOSAGE FORM, QD, 50 MG TABLET
     Route: 065
     Dates: start: 2019

REACTIONS (2)
  - Intentional overdose [Recovered/Resolved]
  - Drug dependence [Recovered/Resolved]
